FAERS Safety Report 5489208-4 (Version None)
Quarter: 2007Q4

REPORT INFORMATION
  Report Type: 
  Country: None (occurrence: None)
  Receive Date: 20071016
  Receipt Date: 20071002
  Transmission Date: 20080405
  Serious: Yes (Hospitalization)
  Sender: FDA-Public Use
  Company Number: MPS1-10575

PATIENT
  Age: 23 Year
  Sex: Female
  Weight: 57.7 kg

DRUGS (9)
  1. ALDURAZYME [Suspect]
     Indication: MUCOPOLYSACCHARIDOSIS I
     Dosage: 0.58 MG/KG QWK IV
     Route: 042
     Dates: start: 20040518
  2. TYLENOL (CAPLET) [Concomitant]
  3. BENADRYL [Concomitant]
  4. REQUIP [Concomitant]
  5. NADOLOL [Concomitant]
  6. TOPAMAX [Concomitant]
  7. ARICEPT [Concomitant]
  8. NEURONTIN [Concomitant]
  9. ZYRTEC [Concomitant]

REACTIONS (9)
  - COMPUTERISED TOMOGRAM ABNORMAL [None]
  - CONDITION AGGRAVATED [None]
  - HEADACHE [None]
  - INTRACRANIAL PRESSURE INCREASED [None]
  - NAUSEA [None]
  - NON-CARDIAC CHEST PAIN [None]
  - PAIN [None]
  - POST PROCEDURAL COMPLICATION [None]
  - SHUNT OCCLUSION [None]
